FAERS Safety Report 12225697 (Version 3)
Quarter: 2016Q2

REPORT INFORMATION
  Report Type: Spontaneous
  Country: CH (occurrence: CH)
  Receive Date: 20160331
  Receipt Date: 20160428
  Transmission Date: 20160815
  Serious: Yes (Hospitalization)
  Sender: FDA-Public Use
  Company Number: CH-SA-2016SA060097

PATIENT
  Age: 53 Year
  Sex: Male

DRUGS (17)
  1. THYMOGLOBULIN [Suspect]
     Active Substance: LAPINE T-LYMPHOCYTE IMMUNE GLOBULIN
     Indication: BONE MARROW CONDITIONING REGIMEN
     Route: 065
     Dates: start: 20160303, end: 20160303
  2. SOLU-MEDROL [Concomitant]
     Active Substance: METHYLPREDNISOLONE SODIUM SUCCINATE
     Indication: BONE MARROW CONDITIONING REGIMEN
     Route: 040
     Dates: start: 20160309, end: 20160311
  3. NEXIUM [Concomitant]
     Active Substance: ESOMEPRAZOLE MAGNESIUM
     Route: 040
     Dates: start: 20160303, end: 20160310
  4. THYMOGLOBULIN [Suspect]
     Active Substance: LAPINE T-LYMPHOCYTE IMMUNE GLOBULIN
     Indication: BONE MARROW CONDITIONING REGIMEN
     Route: 065
     Dates: start: 20160302, end: 20160302
  5. DAFALGAN [Concomitant]
     Active Substance: ACETAMINOPHEN
     Route: 048
     Dates: start: 20160313
  6. SODIUM CHLORIDE. [Concomitant]
     Active Substance: SODIUM CHLORIDE
     Indication: FLUID REPLACEMENT
     Route: 041
     Dates: start: 20160308
  7. URSOFALK [Concomitant]
     Active Substance: URSODIOL
     Route: 048
     Dates: start: 20160308
  8. VALTREX [Concomitant]
     Active Substance: VALACYCLOVIR HYDROCHLORIDE
     Route: 048
     Dates: start: 20160307
  9. POLYMYXIN B SULFATE/NEOMYCIN [Concomitant]
     Route: 048
     Dates: start: 20160308
  10. THYMOGLOBULIN [Suspect]
     Active Substance: LAPINE T-LYMPHOCYTE IMMUNE GLOBULIN
     Indication: BONE MARROW CONDITIONING REGIMEN
     Route: 041
     Dates: start: 20160309, end: 20160311
  11. CLARITINE [Concomitant]
     Active Substance: LORATADINE
     Indication: BONE MARROW CONDITIONING REGIMEN
     Route: 048
     Dates: start: 20160309, end: 20160311
  12. ALKERAN [Concomitant]
     Active Substance: MELPHALAN
     Indication: BONE MARROW CONDITIONING REGIMEN
     Dosage: INJECTION/INFUSION; VIALS
     Route: 041
     Dates: start: 20160312, end: 20160313
  13. FLUDARABINE PHOSPHATE. [Suspect]
     Active Substance: FLUDARABINE PHOSPHATE
     Indication: BONE MARROW CONDITIONING REGIMEN
     Route: 041
     Dates: start: 20160309, end: 20160311
  14. HEPARIN [Concomitant]
     Active Substance: HEPARIN SODIUM
     Route: 041
     Dates: start: 20160308
  15. ZOFRAN [Concomitant]
     Active Substance: ONDANSETRON HYDROCHLORIDE
     Indication: BONE MARROW CONDITIONING REGIMEN
     Dosage: INFUSION AMPOULES
     Route: 048
     Dates: start: 20160309
  16. BACTRIM [Concomitant]
     Active Substance: SULFAMETHOXAZOLE\TRIMETHOPRIM
     Dosage: SOLUTION FOR IV INFUSION; INFUSION AMPOULES BAGS
     Route: 040
  17. THYMOGLOBULIN [Suspect]
     Active Substance: LAPINE T-LYMPHOCYTE IMMUNE GLOBULIN
     Indication: BONE MARROW CONDITIONING REGIMEN
     Route: 065
     Dates: start: 20160304, end: 20160304

REACTIONS (6)
  - Serum sickness-like reaction [Not Recovered/Not Resolved]
  - Product quality issue [Unknown]
  - Pyrexia [Recovered/Resolved]
  - Hypotension [Recovered/Resolved]
  - Pancytopenia [Not Recovered/Not Resolved]
  - Acute kidney injury [Not Recovered/Not Resolved]

NARRATIVE: CASE EVENT DATE: 20160312
